FAERS Safety Report 21542679 (Version 2)
Quarter: 2022Q4

REPORT INFORMATION
  Report Type: Spontaneous
  Country: JP (occurrence: JP)
  Receive Date: 20221102
  Receipt Date: 20221230
  Transmission Date: 20230113
  Serious: Yes (Hospitalization, Other)
  Sender: FDA-Public Use
  Company Number: JP-MTPC-MTPC2022-0029600

PATIENT
  Age: 28 Year
  Sex: Male

DRUGS (8)
  1. REMICADE [Suspect]
     Active Substance: INFLIXIMAB
     Indication: Crohn^s disease
     Dosage: 300 MILLIGRAM, QD
     Route: 041
     Dates: start: 20130704
  2. REMICADE [Suspect]
     Active Substance: INFLIXIMAB
     Dosage: 300 MILLIGRAM, QD
     Route: 041
     Dates: start: 20161128, end: 20161128
  3. REMICADE [Suspect]
     Active Substance: INFLIXIMAB
     Dosage: 460 MILLIGRAM, QD
     Route: 041
     Dates: start: 20170123
  4. ECABET SODIUM [Concomitant]
     Active Substance: ECABET SODIUM
     Dosage: 1.5 GRAM, BID
  5. CIPROFLOXACIN HYDROCHLORIDE [Concomitant]
     Active Substance: CIPROFLOXACIN HYDROCHLORIDE
     Dosage: 200 MILLIGRAM, BID
     Route: 048
  6. MIYA-BM [Concomitant]
     Active Substance: CLOSTRIDIUM BUTYRICUM SPORES STRAIN M-55
     Dosage: 1 GRAM, TID
     Route: 048
  7. MESALAMINE [Concomitant]
     Active Substance: MESALAMINE
     Dosage: 1000 MILLIGRAM, TID
     Route: 048
  8. POSTERISAN FORTE [ESCHERICHIA COLI;HYDROCORTISONE] [Concomitant]
     Dosage: 2 GRAM, BID
     Route: 061

REACTIONS (3)
  - Anal fistula repair [Unknown]
  - Proctalgia [Recovered/Resolved]
  - Anal abscess [Recovered/Resolved]

NARRATIVE: CASE EVENT DATE: 20161224
